FAERS Safety Report 8421935-9 (Version None)
Quarter: 2012Q2

REPORT INFORMATION
  Report Type: 
  Country: None (occurrence: None)
  Receive Date: 20120608
  Receipt Date: 20120604
  Transmission Date: 20120825
  Serious: Yes (Disabling)
  Sender: FDA-Public Use
  Company Number: PHHY2012FR042633

PATIENT
  Sex: Male
  Weight: 73 kg

DRUGS (4)
  1. CORGARD [Concomitant]
  2. AMLODIPINE BESYLATE [Concomitant]
  3. ACETAMINOPHEN [Concomitant]
     Dosage: 2 G, DAILY
  4. TRAMADOL HYDROCHLORIDE [Suspect]
     Indication: PAIN
     Dosage: 2 DF, QD
     Route: 048
     Dates: start: 20120424, end: 20120428

REACTIONS (5)
  - MALAISE [None]
  - BRADYCARDIA [None]
  - PALLOR [None]
  - NAUSEA [None]
  - HYPERHIDROSIS [None]
